FAERS Safety Report 21729635 (Version 1)
Quarter: 2022Q4

REPORT INFORMATION
  Report Type: Spontaneous
  Country: US (occurrence: None)
  Receive Date: 20221214
  Receipt Date: 20221214
  Transmission Date: 20230113
  Serious: No
  Sender: FDA-Public Use
  Company Number: None

PATIENT
  Age: 67 Year
  Sex: Female
  Weight: 60.75 kg

DRUGS (1)
  1. UPNEEQ [Suspect]
     Active Substance: OXYMETAZOLINE HYDROCHLORIDE
     Indication: Eyelid ptosis
     Dosage: FREQUENCY : DAILY;?
     Route: 031
     Dates: start: 20221214, end: 20221214

REACTIONS (4)
  - Dizziness [None]
  - Syncope [None]
  - Heart rate increased [None]
  - Headache [None]

NARRATIVE: CASE EVENT DATE: 20221214
